FAERS Safety Report 8361933-7 (Version None)
Quarter: 2012Q2

REPORT INFORMATION
  Report Type: 
  Country: None (occurrence: None)
  Receive Date: 20120515
  Receipt Date: 20120501
  Transmission Date: 20120825
  Serious: No
  Sender: FDA-Public Use
  Company Number: US-BAYER-2012-043009

PATIENT

DRUGS (2)
  1. NAPROXEN SODIUM [Suspect]
     Indication: TOOTHACHE
     Dosage: 2 DF, UNK
     Route: 048
  2. ASPIRIN [Suspect]
     Indication: TOOTHACHE
     Dosage: 2 DF, UNK
     Route: 048

REACTIONS (4)
  - TOOTHACHE [None]
  - PAIN [None]
  - DYSPEPSIA [None]
  - SOMNOLENCE [None]
